FAERS Safety Report 11701202 (Version 1)
Quarter: 2015Q4

REPORT INFORMATION
  Report Type: Spontaneous
  Country: NO (occurrence: NO)
  Receive Date: 20151105
  Receipt Date: 20151105
  Transmission Date: 20160304
  Serious: Yes (Life-Threatening)
  Sender: FDA-Public Use
  Company Number: NO-009507513-1511NOR001214

PATIENT
  Age: 56 Year
  Sex: Male

DRUGS (4)
  1. ESMERON [Suspect]
     Active Substance: ROCURONIUM BROMIDE
     Indication: ENDOTRACHEAL INTUBATION
     Dosage: 50 MG, ONCE
     Route: 040
     Dates: start: 20151012, end: 20151012
  2. PROPOFOL. [Concomitant]
     Active Substance: PROPOFOL
     Dosage: 200 MG, UNK
     Dates: start: 20151012, end: 20151012
  3. OXYNORM [Concomitant]
     Active Substance: OXYCODONE HYDROCHLORIDE
     Dosage: DOSE NOT SPECIFIED
     Dates: start: 20151012, end: 20151012
  4. ULTIVA [Concomitant]
     Active Substance: REMIFENTANIL HYDROCHLORIDE
     Dosage: 100 MG, UNK
     Dates: start: 20151012, end: 20151012

REACTIONS (4)
  - Cardiovascular disorder [Recovered/Resolved]
  - Bronchospasm [Recovered/Resolved]
  - Urticaria [Recovered/Resolved]
  - Anaphylactic reaction [Recovered/Resolved]

NARRATIVE: CASE EVENT DATE: 20151012
